FAERS Safety Report 7805277-8 (Version None)
Quarter: 2011Q4

REPORT INFORMATION
  Report Type: 
  Country: None (occurrence: None)
  Receive Date: 20111010
  Receipt Date: 20110930
  Transmission Date: 20120403
  Serious: Yes (Other)
  Sender: FDA-Public Use
  Company Number: PHHY2011NL86818

PATIENT
  Sex: Female

DRUGS (1)
  1. HYDROCHLOROTHIAZIDE [Suspect]
     Dosage: 1 DF, QD
     Route: 048

REACTIONS (4)
  - YELLOW SKIN [None]
  - HEPATIC ENZYME INCREASED [None]
  - JAUNDICE [None]
  - BILE DUCT OBSTRUCTION [None]
